FAERS Safety Report 6645112-7 (Version None)
Quarter: 2010Q1

REPORT INFORMATION
  Report Type: 
  Country: None (occurrence: None)
  Receive Date: 20100322
  Receipt Date: 20100310
  Transmission Date: 20100710
  Serious: Yes (Death)
  Sender: FDA-Public Use
  Company Number: US-PFIZER INC-2010031130

PATIENT
  Sex: Female

DRUGS (1)
  1. ELLENCE [Suspect]
     Indication: METASTASES TO BONE
     Dosage: 85 MG 6X EVERY 21 DAYS

REACTIONS (1)
  - DEATH [None]
